FAERS Safety Report 23794829 (Version 1)
Quarter: 2024Q2

REPORT INFORMATION
  Report Type: Spontaneous
  Country: US (occurrence: None)
  Receive Date: 20240426
  Receipt Date: 20240426
  Transmission Date: 20240716
  Serious: No
  Sender: FDA-Public Use
  Company Number: None

PATIENT
  Sex: Female

DRUGS (7)
  1. XOLAIR [Suspect]
     Active Substance: OMALIZUMAB
     Indication: Idiopathic urticaria
     Dosage: FREQUENCY : MONTHLY;?
     Route: 058
     Dates: start: 20230726
  2. CONCERTA [Concomitant]
     Active Substance: METHYLPHENIDATE HYDROCHLORIDE
  3. EPIPEN [Concomitant]
     Active Substance: EPINEPHRINE
  4. KENALOG-40 [Concomitant]
     Active Substance: TRIAMCINOLONE ACETONIDE
  5. METHYKOHENID [Concomitant]
  6. NEO/POLY/DEX OIN [Concomitant]
  7. WINLEVI CRE [Concomitant]

REACTIONS (1)
  - Surgery [None]
